FAERS Safety Report 16757260 (Version 1)
Quarter: 2019Q3

REPORT INFORMATION
  Report Type: Spontaneous
  Country: US (occurrence: US)
  Receive Date: 20190829
  Receipt Date: 20190829
  Transmission Date: 20191005
  Serious: No
  Sender: FDA-Public Use
  Company Number: US-ASTRAZENECA-2019SF02088

PATIENT
  Sex: Female

DRUGS (1)
  1. BYDUREON [Suspect]
     Active Substance: EXENATIDE
     Dosage: 2.0MG UNKNOWN
     Route: 058

REACTIONS (6)
  - Injection site nodule [Unknown]
  - Wrong technique in device usage process [Unknown]
  - Muscle spasms [Unknown]
  - Injection site pain [Unknown]
  - Injection site pruritus [Unknown]
  - Intentional product misuse [Unknown]
